FAERS Safety Report 17528349 (Version 3)
Quarter: 2020Q2

REPORT INFORMATION
  Report Type: Spontaneous
  Country: US (occurrence: US)
  Receive Date: 20200311
  Receipt Date: 20200626
  Transmission Date: 20200713
  Serious: Yes (Other)
  Sender: FDA-Public Use
  Company Number: US-JNJFOC-20200309266

PATIENT
  Sex: Female
  Weight: 62.65 kg

DRUGS (8)
  1. TRACLEER [Concomitant]
     Active Substance: BOSENTAN
     Indication: PULMONARY ARTERIAL HYPERTENSION
     Dosage: TAKE 1 TABLET BY MOUTH TWICE DAILY
     Route: 048
     Dates: start: 20190301, end: 20200129
  2. TYVASO [Concomitant]
     Active Substance: TREPROSTINIL
  3. XARELTO [Suspect]
     Active Substance: RIVAROXABAN
     Indication: PULMONARY THROMBOSIS
     Route: 048
  4. UPTRAVI [Concomitant]
     Active Substance: SELEXIPAG
     Route: 048
  5. UPTRAVI [Concomitant]
     Active Substance: SELEXIPAG
     Route: 048
     Dates: start: 20190626
  6. UPTRAVI [Concomitant]
     Active Substance: SELEXIPAG
     Indication: PULMONARY ARTERIAL HYPERTENSION
     Dosage: SHIP  NO: 0314464
     Route: 048
     Dates: start: 20190624, end: 20200213
  7. UPTRAVI [Concomitant]
     Active Substance: SELEXIPAG
     Route: 048
  8. REVATIO [Concomitant]
     Active Substance: SILDENAFIL CITRATE

REACTIONS (7)
  - Rectal haemorrhage [Unknown]
  - Dry skin [Unknown]
  - Gingival bleeding [Unknown]
  - Cardiac failure congestive [Unknown]
  - Fluid retention [Unknown]
  - Stomatitis [Unknown]
  - Contusion [Unknown]
